FAERS Safety Report 7771976-X (Version None)
Quarter: 2011Q3

REPORT INFORMATION
  Report Type: 
  Country: None (occurrence: None)
  Receive Date: 20110922
  Receipt Date: 20110121
  Transmission Date: 20111222
  Serious: No
  Sender: FDA-Public Use
  Company Number: US-ASTRAZENECA-2011SE03955

PATIENT
  Age: 54 Year
  Sex: Female

DRUGS (2)
  1. ANTI-HYPERTENSION MEDICATION [Concomitant]
     Indication: HYPERTENSION
  2. SEROQUEL XR [Suspect]
     Indication: DEPRESSION
     Route: 048
     Dates: start: 20110101, end: 20110101

REACTIONS (3)
  - FALL [None]
  - HEAD INJURY [None]
  - DIZZINESS [None]
